FAERS Safety Report 18467255 (Version 1)
Quarter: 2020Q4

REPORT INFORMATION
  Report Type: Spontaneous
  Country: US (occurrence: US)
  Receive Date: 20201105
  Receipt Date: 20201105
  Transmission Date: 20210114
  Serious: Yes (Hospitalization, Other)
  Sender: FDA-Public Use
  Company Number: US-SUN PHARMACEUTICAL INDUSTRIES LTD-2020R1-266428

PATIENT
  Age: 20 Year
  Sex: Male

DRUGS (4)
  1. PERPHENAZINE. [Suspect]
     Active Substance: PERPHENAZINE
     Indication: ANXIETY
     Dosage: 2 MILLIGRAM, DAILY
     Route: 065
  2. PHENYLETHYLAMINE [Suspect]
     Active Substance: PHENETHYLAMINE
     Indication: AFFECTIVE DISORDER
     Dosage: 40 MILLIGRAM, DAILY
     Route: 065
  3. AMITRIPTYLINE [Suspect]
     Active Substance: AMITRIPTYLINE
     Indication: ANXIETY
     Dosage: 10 MILLIGRAM, DAILY
     Route: 065
  4. KATROM (MITRAGYNA SPECIOSA) [Suspect]
     Active Substance: HERBALS\MITRAGYNINE
     Indication: AFFECTIVE DISORDER
     Dosage: UNK
     Route: 065

REACTIONS (9)
  - Insomnia [Unknown]
  - Serotonin syndrome [Unknown]
  - Rhabdomyolysis [Unknown]
  - Decreased appetite [Unknown]
  - Transaminases increased [Unknown]
  - Metabolic acidosis [Unknown]
  - Cough [Unknown]
  - Tachycardia [Unknown]
  - Tachypnoea [Unknown]
